FAERS Safety Report 9937246 (Version 2)
Quarter: 2014Q1

REPORT INFORMATION
  Report Type: Spontaneous
  Country: US (occurrence: US)
  Receive Date: 20140302
  Receipt Date: 20140302
  Transmission Date: 20141002
  Serious: Yes (Other)
  Sender: FDA-Public Use
  Company Number: US-GE HEALTHCARE MEDICAL DIAGNOSTICS-OSCN-PR-0902S-0083

PATIENT
  Sex: Male

DRUGS (4)
  1. OMNISCAN [Suspect]
     Indication: CONVULSION
     Route: 042
     Dates: start: 20030830, end: 20030830
  2. MAGNEVIST [Suspect]
     Indication: CONVULSION
     Route: 042
     Dates: start: 20020511, end: 20020511
  3. MAGNEVIST [Suspect]
     Route: 042
     Dates: start: 20030830, end: 20030830
  4. OPTIRAY 350 [Concomitant]

REACTIONS (1)
  - Nephrogenic systemic fibrosis [Not Recovered/Not Resolved]
